FAERS Safety Report 4643433-0 (Version None)
Quarter: 2005Q2

REPORT INFORMATION
  Report Type: 
  Country: None (occurrence: None)
  Receive Date: 20050420
  Receipt Date: 20050420
  Transmission Date: 20051028
  Serious: Yes (Disabling)
  Sender: FDA-Public Use
  Company Number: None

PATIENT
  Age: 42 Year
  Sex: Female
  Weight: 72.5755 kg

DRUGS (2)
  1. GENTAMICIN [Suspect]
     Indication: INFECTION
     Dates: start: 19981001, end: 19981004
  2. GENTAMICIN [Suspect]
     Indication: INFECTION
     Dates: start: 19981012, end: 19981106

REACTIONS (1)
  - OTOTOXICITY [None]
